FAERS Safety Report 20835831 (Version 1)
Quarter: 2022Q2

REPORT INFORMATION
  Report Type: 
  Country: None (occurrence: None)
  Receive Date: 20220516
  Receipt Date: 20220516
  Transmission Date: 20220720
  Serious: No
  Sender: FDA-Public Use
  Company Number: US-ROCHE-3093749

PATIENT

DRUGS (3)
  1. ATEZOLIZUMAB [Suspect]
     Active Substance: ATEZOLIZUMAB
     Dosage: OVER 30-60 MINUTES STARTING ON DAY 1 OF CYCLE 1 OR 2, LAST ADMINISTRATION DATE OF IND: 02/MAR/2021
     Dates: start: 20200212
  2. FLUOROURACIL [Suspect]
     Active Substance: FLUOROURACIL
     Dosage: ON DAY 1, THEN CONTINUOUSLY OVER 46 HOURS ON DAYS 1-3
  3. LEUCOVORIN CALCIUM [Suspect]
     Active Substance: LEUCOVORIN CALCIUM
     Dosage: OVER 2 HOURS ON DAY 1

REACTIONS (1)
  - Lower gastrointestinal haemorrhage [None]

NARRATIVE: CASE EVENT DATE: 20210212
